FAERS Safety Report 9121096 (Version 2)
Quarter: 2013Q2

REPORT INFORMATION
  Report Type: Spontaneous
  Country: US (occurrence: US)
  Receive Date: 20130226
  Receipt Date: 20130419
  Transmission Date: 20140414
  Serious: No
  Sender: FDA-Public Use
  Company Number: US-PFIZER INC-2013067190

PATIENT
  Age: 4 Year
  Sex: Male

DRUGS (2)
  1. CHILDRENS ADVIL [Suspect]
     Indication: PYREXIA
     Dosage: UNK, TWO TIMES A DAY
     Dates: start: 201302, end: 201302
  2. CHILDRENS ADVIL [Suspect]
     Dosage: UNK, TWO TIMES A DAY
     Dates: start: 20130221

REACTIONS (3)
  - Fatigue [Unknown]
  - Malaise [Unknown]
  - Product container seal issue [Unknown]
